FAERS Safety Report 6395705-X (Version None)
Quarter: 2009Q4

REPORT INFORMATION
  Report Type: 
  Country: None (occurrence: None)
  Receive Date: 20091009
  Receipt Date: 20090928
  Transmission Date: 20100525
  Serious: Yes (Other)
  Sender: FDA-Public Use
  Company Number: PHHY2009BR41961

PATIENT
  Age: 63 Year
  Sex: Female

DRUGS (2)
  1. DIOVAN [Suspect]
     Dosage: 80 MG, UNK
     Dates: start: 20090701
  2. FRONTAL [Concomitant]
     Dosage: ? TABLET, SPORADICALLY

REACTIONS (5)
  - ANORECTAL DISCOMFORT [None]
  - DEPRESSED MOOD [None]
  - STRESS [None]
  - UTERINE DISORDER [None]
  - VULVOVAGINAL DISCOMFORT [None]
